FAERS Safety Report 6993000-9 (Version None)
Quarter: 2010Q3

REPORT INFORMATION
  Report Type: 
  Country: None (occurrence: None)
  Receive Date: 20100917
  Receipt Date: 20100914
  Transmission Date: 20110219
  Serious: Yes (Hospitalization)
  Sender: FDA-Public Use
  Company Number: US-RB-012708-10

PATIENT
  Age: 46 Year
  Sex: Female

DRUGS (4)
  1. SUBOXONE [Suspect]
     Indication: PAIN
     Route: 060
     Dates: start: 20100601, end: 20100801
  2. SUBOXONE [Suspect]
     Indication: DRUG DEPENDENCE
     Route: 060
     Dates: start: 20100801
  3. HYDROCODONE [Suspect]
     Indication: PAIN
     Dosage: DOSING DETAILS UNKNOWN
     Route: 065
  4. XANAX [Suspect]
     Indication: ANXIETY
     Dosage: DOSING DETAILS UNKNOWN
     Route: 065
     Dates: start: 20100801

REACTIONS (7)
  - BLOOD POTASSIUM ABNORMAL [None]
  - BLOOD SODIUM ABNORMAL [None]
  - DRUG DEPENDENCE [None]
  - ELECTROLYTE IMBALANCE [None]
  - MAJOR DEPRESSION [None]
  - PAIN [None]
  - PALPITATIONS [None]
